FAERS Safety Report 9991359 (Version 1)
Quarter: 2014Q1

REPORT INFORMATION
  Report Type: Report from Study
  Country: US (occurrence: US)
  Receive Date: 20140310
  Receipt Date: 20140310
  Transmission Date: 20141002
  Serious: No
  Sender: FDA-Public Use
  Company Number: US-ABBVIE-13P-163-1129482-00

PATIENT
  Age: 35 Year
  Sex: Female

DRUGS (3)
  1. HUMIRA [Suspect]
     Indication: COLITIS ULCERATIVE
     Dates: start: 20130521
  2. PREDNISONE [Concomitant]
     Indication: COLITIS ULCERATIVE
     Dosage: 10MG DAILY
  3. METHOTREXATE [Concomitant]
     Indication: COLITIS ULCERATIVE
     Dosage: 12.5MG WEEKLY
     Dates: end: 20130722

REACTIONS (4)
  - Nausea [Not Recovered/Not Resolved]
  - Injection site papule [Not Recovered/Not Resolved]
  - Injection site pruritus [Not Recovered/Not Resolved]
  - Injection site erythema [Not Recovered/Not Resolved]
